FAERS Safety Report 20380790 (Version 4)
Quarter: 2022Q2

REPORT INFORMATION
  Report Type: Spontaneous
  Country: US (occurrence: US)
  Receive Date: 20220127
  Receipt Date: 20220520
  Transmission Date: 20220720
  Serious: No
  Sender: FDA-Public Use
  Company Number: US-SA-SAC20220121000316

PATIENT
  Age: 54 Year
  Sex: Female

DRUGS (1)
  1. KEVZARA [Suspect]
     Active Substance: SARILUMAB
     Indication: Rheumatoid arthritis
     Dosage: 200 MG, QOW
     Route: 058
     Dates: start: 202112

REACTIONS (6)
  - Malaise [Unknown]
  - Product use issue [Unknown]
  - Nasopharyngitis [Unknown]
  - Herpes zoster [Unknown]
  - Injection site pruritus [Unknown]
  - Infection [Unknown]
